FAERS Safety Report 4687827-6 (Version None)
Quarter: 2005Q2

REPORT INFORMATION
  Report Type: 
  Country: None (occurrence: None)
  Receive Date: 20050610
  Receipt Date: 20050610
  Transmission Date: 20051028
  Serious: Yes (Other)
  Sender: FDA-Public Use
  Company Number: None

PATIENT
  Age: 56 Year
  Sex: Male
  Weight: 80.9 kg

DRUGS (12)
  1. TIOTROPIUM [Suspect]
     Indication: CHRONIC OBSTRUCTIVE PULMONARY DISEASE
     Dosage: 18MCG    DAILY    RESPIRATOR
     Route: 055
     Dates: start: 20050129, end: 20050420
  2. TIOTROPIUM [Suspect]
     Indication: EMPHYSEMA
     Dosage: 18MCG    DAILY    RESPIRATOR
     Route: 055
     Dates: start: 20050129, end: 20050420
  3. ALBUTEROL [Concomitant]
  4. DIAZEPAM [Concomitant]
  5. FLUNISOLIDE [Concomitant]
  6. FLUTICASONE PROP [Concomitant]
  7. FORMOTEROL FUMARATE [Concomitant]
  8. LISINOPRIL [Concomitant]
  9. MIRTAZAPINE [Concomitant]
  10. OMEPRAZOLE [Concomitant]
  11. SIMVASTATIN [Concomitant]
  12. TEMAZEPAM [Concomitant]

REACTIONS (3)
  - URINARY HESITATION [None]
  - URINARY INCONTINENCE [None]
  - URINARY RETENTION [None]
